FAERS Safety Report 6039131-1 (Version None)
Quarter: 2009Q1

REPORT INFORMATION
  Report Type: 
  Country: None (occurrence: None)
  Receive Date: 20090115
  Receipt Date: 20090112
  Transmission Date: 20090719
  Serious: Yes (Death)
  Sender: FDA-Public Use
  Company Number: US-ELI_LILLY_AND_COMPANY-US200901001987

PATIENT
  Age: 70 Year
  Sex: Female

DRUGS (2)
  1. XIGRIS [Suspect]
     Dates: start: 20090105, end: 20090107
  2. ANTIBIOTICS [Concomitant]

REACTIONS (1)
  - SEPSIS [None]
